FAERS Safety Report 8066707-2 (Version None)
Quarter: 2012Q1

REPORT INFORMATION
  Report Type: 
  Country: None (occurrence: None)
  Receive Date: 20120124
  Receipt Date: 20120117
  Transmission Date: 20120608
  Serious: Yes (Death, Hospitalization, Other)
  Sender: FDA-Public Use
  Company Number: US-ELI_LILLY_AND_COMPANY-US201201005904

PATIENT
  Age: 42 Year
  Sex: Male

DRUGS (7)
  1. IFOSFAMIDE [Concomitant]
     Indication: ADENOCARCINOMA
     Dosage: 2 G/M2, DAILY FOR 4 DAYS OF EACH 21 DAY CYCLE
  2. MAGNESIUM SULFATE [Concomitant]
     Indication: PROPHYLAXIS
     Route: 042
  3. GEMCITABINE HYDROCHLORIDE [Suspect]
     Indication: ADENOCARCINOMA
     Dosage: UNK, ON DAY 2 AND 4, EVERY 21 DAYS
  4. DOXORUBICIN HCL [Concomitant]
     Indication: ADENOCARCINOMA
     Dosage: 20 MG/M2, DAILY FOR 3 DAYS OF EACH 21 DAY CYCLE
  5. ANTIEMETICS AND ANTINAUSEANTS [Concomitant]
  6. MESNA [Concomitant]
     Dosage: 400 MG/M2, 5 TIMES A DAY, FOR 4 DAYS OF EACH 21 DAY CYCLE
     Route: 042
  7. POTASSIUM CHLORIDE [Concomitant]
     Indication: PROPHYLAXIS
     Route: 042

REACTIONS (9)
  - ALOPECIA [None]
  - HYPERKALAEMIA [None]
  - BLOOD DISORDER [None]
  - SUDDEN DEATH [None]
  - NEPHROPATHY TOXIC [None]
  - DECREASED APPETITE [None]
  - NEOPLASM MALIGNANT [None]
  - HEPATORENAL SYNDROME [None]
  - ASTHENIA [None]
